FAERS Safety Report 5568388-6 (Version None)
Quarter: 2007Q4

REPORT INFORMATION
  Report Type: 
  Country: None (occurrence: None)
  Receive Date: 20071220
  Receipt Date: 20071210
  Transmission Date: 20080405
  Serious: Yes (Hospitalization)
  Sender: FDA-Public Use
  Company Number: US-AMGEN-STX256392

PATIENT
  Sex: Female

DRUGS (2)
  1. ENBREL [Suspect]
     Indication: RHEUMATOID ARTHRITIS
     Route: 058
     Dates: start: 19990101
  2. PLAQUENIL [Concomitant]
     Route: 048
     Dates: start: 19970101

REACTIONS (8)
  - ANAEMIA [None]
  - ARTHRALGIA [None]
  - FALL [None]
  - FATIGUE [None]
  - FEMUR FRACTURE [None]
  - INJECTION SITE IRRITATION [None]
  - INSOMNIA [None]
  - NEUROPATHY PERIPHERAL [None]
